FAERS Safety Report 22964785 (Version 3)
Quarter: 2023Q4

REPORT INFORMATION
  Report Type: Report from Study
  Country: BG (occurrence: BG)
  Receive Date: 20230921
  Receipt Date: 20231027
  Transmission Date: 20240110
  Serious: Yes (Hospitalization)
  Sender: FDA-Public Use
  Company Number: BG-002147023-NVSC2023BG200498

PATIENT
  Age: 67 Year
  Sex: Female
  Weight: 85 kg

DRUGS (7)
  1. LEQVIO [Suspect]
     Active Substance: INCLISIRAN SODIUM
     Indication: Arteriosclerosis
     Dosage: 284 MG (SINGLE SUBCUTANEOUS INJECTION INITIALLY, AGAIN AT 3 MONTHS, AND THEN EVERY 6 MONTHS)
     Route: 058
     Dates: start: 20230428
  2. LEQVIO [Suspect]
     Active Substance: INCLISIRAN SODIUM
     Dosage: UNK
     Route: 065
     Dates: start: 20230726
  3. KETOFLEX [Concomitant]
     Indication: Product used for unknown indication
     Dosage: UNK (50 MG/ML 2 ML ? 8 PCS)
     Route: 065
  4. ENOXAPARIN SODIUM [Concomitant]
     Active Substance: ENOXAPARIN SODIUM
     Indication: Product used for unknown indication
     Dosage: UNK 9 60 MG/0.6 ML X6 ? 2 PCS. )
     Route: 065
  5. SODIUM CHLORIDE [Concomitant]
     Active Substance: SODIUM CHLORIDE
     Indication: Product used for unknown indication
     Dosage: UNK(500 ML ? 8 PCS)
     Route: 065
  6. SODIUM CHLORIDE [Concomitant]
     Active Substance: SODIUM CHLORIDE
     Dosage: UNK (0.9 PERCENT 100 ML ? ECO VIAL ? 8 PCS)
     Route: 065
  7. PENTILIN [Concomitant]
     Indication: Product used for unknown indication
     Dosage: UNK (100 MG ? 5 ML ? 6 PCS)
     Route: 065

REACTIONS (6)
  - Embolism arterial [Unknown]
  - Peripheral swelling [Unknown]
  - Pain in extremity [Unknown]
  - Postoperative wound infection [Unknown]
  - Amputation stump pain [Unknown]
  - Post procedural discharge [Unknown]
